FAERS Safety Report 21628503 (Version 1)
Quarter: 2022Q4

REPORT INFORMATION
  Report Type: Spontaneous
  Country: US (occurrence: None)
  Receive Date: 20221121
  Receipt Date: 20221121
  Transmission Date: 20230113
  Serious: Yes (Other)
  Sender: FDA-Public Use
  Company Number: None

PATIENT
  Age: 62 Year
  Sex: Female
  Weight: 73.8 kg

DRUGS (11)
  1. NEXLETOL [Suspect]
     Active Substance: BEMPEDOIC ACID
     Indication: Hyperlipidaemia
     Dosage: FREQUENCY : DAILY;?
     Route: 048
     Dates: start: 20220731, end: 20220809
  2. MV Mechanical Valve [Concomitant]
  3. COUMADIN [Concomitant]
     Active Substance: WARFARIN SODIUM
  4. METOPROLOL [Concomitant]
     Active Substance: METOPROLOL
  5. ZETIA [Concomitant]
     Active Substance: EZETIMIBE
  6. ASPIRIN [Concomitant]
     Active Substance: ASPIRIN
  7. PRALUENT [Concomitant]
     Active Substance: ALIROCUMAB
  8. VITAMIN D [Concomitant]
     Active Substance: VITAMIN D NOS
  9. HERBALS\TURMERIC [Concomitant]
     Active Substance: HERBALS\TURMERIC
  10. MAGNESIUM [Concomitant]
     Active Substance: MAGNESIUM
  11. TYLENOL [Concomitant]
     Active Substance: ACETAMINOPHEN

REACTIONS (3)
  - Haematoma [None]
  - Mobility decreased [None]
  - Peripheral swelling [None]

NARRATIVE: CASE EVENT DATE: 20220810
